FAERS Safety Report 17538190 (Version 1)
Quarter: 2020Q1

REPORT INFORMATION
  Report Type: Spontaneous
  Country: US (occurrence: US)
  Receive Date: 20200306
  Receipt Date: 20200306
  Transmission Date: 20200409
  Serious: No
  Sender: FDA-Public Use
  Company Number: None

PATIENT
  Age: 21 Year
  Sex: Female

DRUGS (1)
  1. REMICADE [Suspect]
     Active Substance: INFLIXIMAB
     Dosage: OTHER FREQUENCY: EVERY 4 WEEKS
     Route: 040

REACTIONS (4)
  - Mouth ulceration [None]
  - Condition aggravated [None]
  - Off label use [None]
  - Gastrointestinal disorder [None]

NARRATIVE: CASE EVENT DATE: 20200306
